FAERS Safety Report 18707369 (Version 1)
Quarter: 2021Q1

REPORT INFORMATION
  Report Type: Spontaneous
  Country: US (occurrence: US)
  Receive Date: 20210106
  Receipt Date: 20210106
  Transmission Date: 20210419
  Serious: No
  Sender: FDA-Public Use
  Company Number: US-PERRIGO-20US004588

PATIENT
  Age: 67 Year
  Sex: Male
  Weight: 104.31 kg

DRUGS (2)
  1. MIGRAINE FORMULA [Suspect]
     Active Substance: ACETAMINOPHEN\ASPIRIN\CAFFEINE
     Indication: MIGRAINE
     Dosage: 2 TABLETS, QD, PRN
     Route: 048
     Dates: start: 20200322, end: 20200323
  2. ANTIHYPERTENSIVES [Concomitant]
     Active Substance: UNSPECIFIED INGREDIENT
     Indication: HYPERTENSION
     Dosage: UNK
     Route: 065

REACTIONS (1)
  - Haemorrhage urinary tract [Not Recovered/Not Resolved]

NARRATIVE: CASE EVENT DATE: 20200323
